FAERS Safety Report 7229179-3 (Version None)
Quarter: 2011Q1

REPORT INFORMATION
  Report Type: 
  Country: None (occurrence: None)
  Receive Date: 20110117
  Receipt Date: 20110110
  Transmission Date: 20110831
  Serious: Yes (Other)
  Sender: FDA-Public Use
  Company Number: US-PFIZER INC-2009185114

PATIENT
  Sex: Female
  Weight: 64 kg

DRUGS (8)
  1. PROVERA [Suspect]
     Indication: HORMONE REPLACEMENT THERAPY
     Dosage: 2.5 MG, UNK
     Route: 048
     Dates: start: 19810101, end: 19950101
  2. LABETALOL [Concomitant]
     Indication: ARRHYTHMIA
     Dosage: 100 MG, 1X/DAY
     Dates: start: 19900101
  3. PROPAFENONE [Concomitant]
     Indication: ARRHYTHMIA
     Dosage: 225 MG, 2X/DAY
     Dates: start: 19900101
  4. PROVERA [Suspect]
     Indication: MENOPAUSAL SYMPTOMS
  5. LEVOTHYROXINE [Concomitant]
     Indication: HYPOTHYROIDISM
     Dosage: 175 MG, 1X/DAY
     Dates: start: 19800101
  6. HYDROCHLOROTHIAZIDE [Concomitant]
     Indication: BLOOD PRESSURE
     Dosage: 25 MG, 1X/DAY
     Dates: start: 19880101, end: 20070101
  7. PREMARIN [Suspect]
     Indication: HORMONE REPLACEMENT THERAPY
     Dosage: 0.625 MG, UNK
     Route: 048
     Dates: start: 19760101, end: 19950101
  8. PREMARIN [Suspect]
     Indication: MENOPAUSAL SYMPTOMS

REACTIONS (2)
  - BREAST CANCER FEMALE [None]
  - CONTRALATERAL BREAST CANCER [None]
